FAERS Safety Report 8000600-6 (Version None)
Quarter: 2011Q4

REPORT INFORMATION
  Report Type: 
  Country: None (occurrence: None)
  Receive Date: 20111216
  Receipt Date: 20111212
  Transmission Date: 20120403
  Serious: Yes (Death, Other)
  Sender: FDA-Public Use
  Company Number: 2006SP008889

PATIENT
  Age: 68 Year
  Sex: Male
  Weight: 48 kg

DRUGS (7)
  1. TEMODAL [Suspect]
     Indication: RECURRENT CANCER
     Dosage: 75 MG/M2;QD;PO
     Route: 048
     Dates: start: 20060921, end: 20061016
  2. TEMODAL [Suspect]
     Indication: GLIOBLASTOMA MULTIFORME
     Dosage: 75 MG/M2;QD;PO
     Route: 048
     Dates: start: 20060921, end: 20061016
  3. NICARDIPINE HCL [Concomitant]
  4. NEW LECICARBON [Concomitant]
  5. DEPAKENE [Concomitant]
  6. DECADRON [Suspect]
     Indication: GLIOBLASTOMA MULTIFORME
     Dosage: PO
     Route: 048
     Dates: start: 20060814, end: 20061112
  7. DECADRON [Suspect]
     Indication: RECURRENT CANCER
     Dosage: PO
     Route: 048
     Dates: start: 20060814, end: 20061112

REACTIONS (3)
  - INFECTION IN AN IMMUNOCOMPROMISED HOST [None]
  - BRONCHOPULMONARY ASPERGILLOSIS [None]
  - PANCYTOPENIA [None]
